FAERS Safety Report 9996527 (Version 1)
Quarter: 2014Q1

REPORT INFORMATION
  Report Type: Spontaneous
  Country: AT (occurrence: AT)
  Receive Date: 20140311
  Receipt Date: 20140311
  Transmission Date: 20141002
  Serious: Yes (Life-Threatening)
  Sender: FDA-Public Use
  Company Number: PHHY2014AT025890

PATIENT
  Age: 62 Year
  Sex: Female

DRUGS (5)
  1. EBETAXEL [Suspect]
     Indication: NEOPLASM MALIGNANT
     Dates: start: 20140120, end: 20140120
  2. THYREX [Concomitant]
     Dosage: 100 UG, QD
  3. PANTOLOC [Concomitant]
     Dosage: 40 MG, QD
  4. AGAFFIN [Concomitant]
  5. EMEND [Concomitant]
     Dosage: 80 MG, QD

REACTIONS (4)
  - Drug reaction with eosinophilia and systemic symptoms [Not Recovered/Not Resolved]
  - Chest discomfort [Not Recovered/Not Resolved]
  - Blood pressure increased [Not Recovered/Not Resolved]
  - Flushing [Not Recovered/Not Resolved]
